FAERS Safety Report 17263285 (Version 3)
Quarter: 2023Q1

REPORT INFORMATION
  Report Type: Report from Study
  Country: US (occurrence: US)
  Receive Date: 20200113
  Receipt Date: 20230209
  Transmission Date: 20230418
  Serious: No
  Sender: FDA-Public Use
  Company Number: US-IPSEN BIOPHARMACEUTICALS, INC.-2020-00578

PATIENT
  Age: 60 Year
  Sex: Female

DRUGS (2)
  1. SOMATULINE DEPOT [Suspect]
     Active Substance: LANREOTIDE ACETATE
     Indication: Carcinoid tumour
     Route: 030
     Dates: start: 20191021
  2. SOMATULINE DEPOT [Suspect]
     Active Substance: LANREOTIDE ACETATE
     Indication: Carcinoid tumour of the stomach
     Route: 058
     Dates: start: 201912

REACTIONS (14)
  - Hypoaesthesia [Unknown]
  - Headache [Unknown]
  - Nausea [Unknown]
  - Vomiting [Unknown]
  - Gastrooesophageal reflux disease [Unknown]
  - Abdominal pain [Unknown]
  - Incorrect route of product administration [Unknown]
  - Anxiety [Recovering/Resolving]
  - Dyspnoea [Recovering/Resolving]
  - Chest pain [Unknown]
  - Muscle spasms [Unknown]
  - Breast mass [Unknown]
  - Discomfort [Unknown]
  - Anxiety [Not Recovered/Not Resolved]

NARRATIVE: CASE EVENT DATE: 20191021
